FAERS Safety Report 4478848-7 (Version None)
Quarter: 2004Q4

REPORT INFORMATION
  Report Type: 
  Country: None (occurrence: None)
  Receive Date: 20041019
  Receipt Date: 20040906
  Transmission Date: 20050328
  Serious: Yes (Hospitalization)
  Sender: FDA-Public Use
  Company Number: DE-BRISTOL-MYERS SQUIBB COMPANY-12694030

PATIENT
  Age: 42 Year
  Sex: Female
  Weight: 77 kg

DRUGS (4)
  1. PACLITAXEL [Suspect]
     Indication: BREAST CANCER
     Dosage: 175 MG/M^2
     Route: 042
     Dates: start: 20040301, end: 20040301
  2. CYCLOPHOSPHAMIDE [Suspect]
     Indication: BREAST CANCER
     Dosage: THERAPY DATES: 29-AUG TO 31-OCT-2003
     Route: 042
     Dates: start: 20031031, end: 20031031
  3. FARMORUBICIN [Suspect]
     Indication: BREAST CANCER
     Dosage: THERAPY DATES: 29-AUG TO 31-OCT-2003
     Route: 042
     Dates: start: 20031031, end: 20031031
  4. IMBUN [Concomitant]
     Indication: PAIN IN EXTREMITY
     Dosage: 1 TABLET ON 3/3 AND 4 TABLETS ON 3/4
     Dates: start: 20040303, end: 20040304

REACTIONS (2)
  - LOSS OF CONSCIOUSNESS [None]
  - VERTIGO [None]
